FAERS Safety Report 19824241 (Version 1)
Quarter: 2021Q3

REPORT INFORMATION
  Report Type: Spontaneous
  Country: US (occurrence: US)
  Receive Date: 20210913
  Receipt Date: 20210913
  Transmission Date: 20211014
  Serious: No
  Sender: FDA-Public Use
  Company Number: US-TAKEDA-US201840849

PATIENT

DRUGS (2)
  1. ELAPRASE [Suspect]
     Active Substance: IDURSULFASE
     Indication: MUCOPOLYSACCHARIDOSIS II
     Dosage: UNK, 1X/WEEK
     Route: 042
     Dates: start: 20130403
  2. ELAPRASE [Suspect]
     Active Substance: IDURSULFASE
     Dosage: 5 DOSAGE FORM
     Route: 065

REACTIONS (2)
  - Inappropriate schedule of product administration [Unknown]
  - Catheter placement [Unknown]

NARRATIVE: CASE EVENT DATE: 20181005
